FAERS Safety Report 5365891-9 (Version None)
Quarter: 2007Q2

REPORT INFORMATION
  Report Type: 
  Country: None (occurrence: None)
  Receive Date: 20070621
  Receipt Date: 20070614
  Transmission Date: 20071010
  Serious: Yes (Hospitalization)
  Sender: FDA-Public Use
  Company Number: JP-MERCK-0706USA00269

PATIENT
  Age: 62 Year
  Sex: Male
  Weight: 87 kg

DRUGS (5)
  1. HYZAAR [Suspect]
     Indication: HYPERTENSION
     Route: 048
     Dates: start: 20061130, end: 20070526
  2. ASPIRIN [Concomitant]
     Route: 048
  3. CARDENALIN [Concomitant]
     Route: 048
  4. ATELEC [Concomitant]
     Route: 048
  5. [THERAPY UNSPECIFIED] [Concomitant]
     Route: 048

REACTIONS (2)
  - MALAISE [None]
  - RENAL DISORDER [None]
